FAERS Safety Report 17751865 (Version 1)
Quarter: 2020Q2

REPORT INFORMATION
  Report Type: Spontaneous
  Country: CN (occurrence: CN)
  Receive Date: 20200506
  Receipt Date: 20200506
  Transmission Date: 20200714
  Serious: Yes (Other)
  Sender: FDA-Public Use
  Company Number: CN-BAXTER-2020BAX009557

PATIENT
  Age: 62 Year
  Sex: Female
  Weight: 65 kg

DRUGS (5)
  1. ENDOXAN [Suspect]
     Active Substance: CYCLOPHOSPHAMIDE
     Indication: BREAST CANCER FEMALE
     Dosage: FIRST CHEMOTHERAPY, ENDOXAN 800 MG + NS 40 ML
     Route: 042
     Dates: start: 20200306, end: 20200306
  2. 0.9% SODIUM CHLORIDE INJECTION [Suspect]
     Active Substance: SODIUM CHLORIDE
     Indication: MEDICATION DILUTION
     Dosage: FIRST CHEMOTHERAPY, ENDOXAN 800 MG + NS 40 ML
     Route: 042
     Dates: start: 20200306, end: 20200306
  3. JINYULI [Concomitant]
     Indication: PROPHYLAXIS
     Route: 058
     Dates: start: 20200307
  4. 0.9% SODIUM CHLORIDE INJECTION [Suspect]
     Active Substance: SODIUM CHLORIDE
     Dosage: FIRST CHEMOTHERAPY, PHARMORUBICIN 130 MG + NS 100 ML
     Route: 041
     Dates: start: 20200306, end: 20200306
  5. PHARMORUBICIN [Suspect]
     Active Substance: EPIRUBICIN
     Indication: BREAST CANCER FEMALE
     Dosage: FIRST CHEMOTHERAPY, PHARMORUBICIN 130 MG + NS 100 ML
     Route: 041
     Dates: start: 20200306, end: 20200306

REACTIONS (2)
  - White blood cell count decreased [Recovered/Resolved]
  - Agranulocytosis [Recovered/Resolved]

NARRATIVE: CASE EVENT DATE: 20200314
